FAERS Safety Report 7869082-9 (Version None)
Quarter: 2011Q4

REPORT INFORMATION
  Report Type: 
  Country: None (occurrence: None)
  Receive Date: 20111026
  Receipt Date: 20111026
  Transmission Date: 20120403
  Serious: Yes (Life-Threatening, Hospitalization)
  Sender: FDA-Public Use
  Company Number: None

PATIENT
  Age: 56 Year
  Sex: Female
  Weight: 116.5 kg

DRUGS (3)
  1. AMPICILLIN AND SULBACTAM [Suspect]
     Indication: SOFT TISSUE INFECTION
     Dosage: 3 GM OTHER IV
     Route: 042
     Dates: start: 20110523, end: 20110523
  2. AMPICILLIN AND SULBACTAM [Suspect]
     Indication: URINARY TRACT INFECTION
     Dosage: 3 GM OTHER IV
     Route: 042
     Dates: start: 20110523, end: 20110523
  3. AMPICILLIN AND SULBACTAM [Suspect]
     Indication: SKIN INFECTION
     Dosage: 3 GM OTHER IV
     Route: 042
     Dates: start: 20110523, end: 20110523

REACTIONS (11)
  - LYMPHADENOPATHY [None]
  - RASH ERYTHEMATOUS [None]
  - PAROTITIS [None]
  - PAPULE [None]
  - PAIN [None]
  - VOMITING [None]
  - URTICARIA [None]
  - ERYTHEMA MULTIFORME [None]
  - GLOSSODYNIA [None]
  - NAUSEA [None]
  - PRURITUS [None]
